FAERS Safety Report 7376261-6 (Version None)
Quarter: 2011Q1

REPORT INFORMATION
  Report Type: 
  Country: None (occurrence: None)
  Receive Date: 20110325
  Receipt Date: 20110302
  Transmission Date: 20110831
  Serious: No
  Sender: FDA-Public Use
  Company Number: US-B.I. PHARMACEUTICALS,INC./RIDGEFIELD-2011-BP-06172BP

PATIENT
  Sex: Male

DRUGS (5)
  1. ALLEGRA [Concomitant]
     Indication: MULTIPLE ALLERGIES
  2. COREG [Concomitant]
     Indication: ATRIAL FIBRILLATION
  3. PREVACID [Concomitant]
     Indication: GASTROOESOPHAGEAL REFLUX DISEASE
  4. PRADAXA [Suspect]
     Indication: ATRIAL FIBRILLATION
     Dosage: 300 MG
     Route: 048
     Dates: start: 20110225, end: 20110226
  5. CELEBREX [Concomitant]
     Indication: ARTHRITIS

REACTIONS (2)
  - FREQUENT BOWEL MOVEMENTS [None]
  - ABDOMINAL PAIN LOWER [None]
